FAERS Safety Report 7332629-5 (Version None)
Quarter: 2011Q1

REPORT INFORMATION
  Report Type: 
  Country: None (occurrence: None)
  Receive Date: 20110228
  Receipt Date: 20110228
  Transmission Date: 20110831
  Serious: Yes (Other)
  Sender: FDA-Public Use
  Company Number: None

PATIENT
  Age: 49 Year
  Sex: Male
  Weight: 78.9259 kg

DRUGS (1)
  1. THERAFLU SEVERE COLD + FLU PARSIPPANNY, NJ 07054-0622 [Suspect]
     Indication: NASOPHARYNGITIS
     Dosage: 0.36 GRAMS 1 A DAY BUCCAL
     Route: 002
     Dates: start: 20110204, end: 20110222

REACTIONS (1)
  - EPISTAXIS [None]
